FAERS Safety Report 8722840 (Version 2)
Quarter: 2012Q4

REPORT INFORMATION
  Report Type: 
  Country: US (occurrence: US)
  Receive Date: 20120814
  Receipt Date: 20120918
  Transmission Date: 20130627
  Serious: No
  Sender: FDA-Public Use
  Company Number: US-009507513-1208USA003872

PATIENT

DRUGS (1)
  1. OCTINOXATE\OCTISALATE\ZINC OXIDE [Suspect]
     Indication: PRODUCT USED FOR UNKNOWN INDICATION
     Dosage: UNK, Unknown
     Route: 061
     Dates: start: 201205

REACTIONS (2)
  - Chemical injury [Not Recovered/Not Resolved]
  - Hypersensitivity [Not Recovered/Not Resolved]
